FAERS Safety Report 20508624 (Version 6)
Quarter: 2022Q4

REPORT INFORMATION
  Report Type: Report from Study
  Country: CA (occurrence: CA)
  Receive Date: 20220223
  Receipt Date: 20221017
  Transmission Date: 20230112
  Serious: Yes (Other)
  Sender: FDA-Public Use
  Company Number: CA-BAUSCH-BL-2022-004284

PATIENT
  Age: 73 Year
  Sex: Female
  Weight: 95.692 kg

DRUGS (6)
  1. CONTRAVE [Suspect]
     Active Substance: BUPROPION HYDROCHLORIDE\NALTREXONE HYDROCHLORIDE
     Indication: Weight control
     Dosage: 90/8 MG; (FIRST ATTEMPT)
     Route: 048
     Dates: start: 202107
  2. CONTRAVE [Suspect]
     Active Substance: BUPROPION HYDROCHLORIDE\NALTREXONE HYDROCHLORIDE
     Dosage: 90/8MG ; (FIRST ATTEMPT) TOOK CONTRAVE FOR 2 AND 1/2 MONTHS, STOPPED AT 4 TABS/DAY
     Route: 048
     Dates: end: 20210830
  3. CONTRAVE [Suspect]
     Active Substance: BUPROPION HYDROCHLORIDE\NALTREXONE HYDROCHLORIDE
     Dosage: 90/8 MG; (SECOND ATTEMPT) RESTARTED TITRATION FROM DAY 1
     Route: 048
     Dates: start: 20211001, end: 202110
  4. CONTRAVE [Suspect]
     Active Substance: BUPROPION HYDROCHLORIDE\NALTREXONE HYDROCHLORIDE
     Dosage: 90/8MG ; (SECOND ATTEMPT) 2 TABS IN MORNING AND 2 TABS IN EVENING
     Route: 048
     Dates: start: 20211022
  5. CONTRAVE [Suspect]
     Active Substance: BUPROPION HYDROCHLORIDE\NALTREXONE HYDROCHLORIDE
     Dosage: 90/8MG ; 2 TABS IN MORNING
     Route: 048
     Dates: start: 20210617, end: 20220815
  6. COLESTID [Concomitant]
     Active Substance: COLESTIPOL HYDROCHLORIDE
     Indication: Diarrhoea
     Dosage: 1 GM, 1 IN 1 D
     Route: 048

REACTIONS (16)
  - Cataract [Unknown]
  - Weight increased [Not Recovered/Not Resolved]
  - Epicondylitis [Not Recovered/Not Resolved]
  - Papule [Recovered/Resolved]
  - Blunted affect [Not Recovered/Not Resolved]
  - Pruritus [Not Recovered/Not Resolved]
  - Depressed mood [Recovered/Resolved]
  - Insomnia [Not Recovered/Not Resolved]
  - Balance disorder [Recovered/Resolved]
  - Blood pressure increased [Not Recovered/Not Resolved]
  - Diarrhoea [Recovered/Resolved]
  - Dizziness [Recovered/Resolved]
  - Therapeutic response unexpected [Unknown]
  - Intentional product use issue [Unknown]
  - Inappropriate schedule of product administration [Unknown]
  - Drug titration error [Unknown]

NARRATIVE: CASE EVENT DATE: 20210830
